FAERS Safety Report 16888906 (Version 4)
Quarter: 2022Q1

REPORT INFORMATION
  Report Type: Spontaneous
  Country: JP (occurrence: JP)
  Receive Date: 20191007
  Receipt Date: 20220318
  Transmission Date: 20220423
  Serious: Yes (Death, Hospitalization, Other)
  Sender: FDA-Public Use
  Company Number: JP-MSD-1910JPN000513J

PATIENT
  Sex: Male
  Weight: 40 kg

DRUGS (8)
  1. KEYTRUDA [Suspect]
     Active Substance: PEMBROLIZUMAB
     Indication: Non-small cell lung cancer stage IV
     Dosage: 200 MILLIGRAM
     Route: 041
     Dates: start: 20190109, end: 20190508
  2. CARVEDILOL [Concomitant]
     Active Substance: CARVEDILOL
     Dosage: 2.5 MILLIGRAM, ONCE A DAY (QD)
     Route: 048
     Dates: start: 20171023
  3. PARACETAMOL;TRAMADOL HYDROCHLORIDE [Concomitant]
     Dosage: 2 DOSAGE FORM, ONCE A DAY (QD)
     Route: 048
     Dates: start: 20180602
  4. VONOPRAZAN FUMARATE [Concomitant]
     Active Substance: VONOPRAZAN FUMARATE
     Dosage: 10 MILLIGRAM, ONCE A DAY (QD)
     Route: 048
     Dates: start: 20180227
  5. BETAMETHASONE [Concomitant]
     Active Substance: BETAMETHASONE
     Dosage: 1 MILLIGRAM, ONCE A DAY (QD)
     Route: 048
     Dates: start: 20180608
  6. SULFAMETHOXAZOLE\TRIMETHOPRIM [Concomitant]
     Active Substance: SULFAMETHOXAZOLE\TRIMETHOPRIM
     Dosage: 0.5 DOSAGE FORM, ONCE A DAY (QD)
     Route: 048
  7. MAGNESIUM OXIDE [Concomitant]
     Active Substance: MAGNESIUM OXIDE
     Dosage: 330 MILLIGRAM
     Route: 048
  8. PRAVASTATIN SODIUM [Concomitant]
     Active Substance: PRAVASTATIN SODIUM
     Dosage: 10 MILLIGRAM, ONCE A DAY (QD)
     Route: 048

REACTIONS (3)
  - Immune-mediated enterocolitis [Not Recovered/Not Resolved]
  - Malignant neoplasm progression [Fatal]
  - Device related infection [Not Recovered/Not Resolved]

NARRATIVE: CASE EVENT DATE: 20190101
